FAERS Safety Report 20308899 (Version 1)
Quarter: 2022Q1

REPORT INFORMATION
  Report Type: Spontaneous
  Country: US (occurrence: None)
  Receive Date: 20220106
  Receipt Date: 20220106
  Transmission Date: 20220424
  Serious: Yes (Life-Threatening, Disabling)
  Sender: FDA-Public Use
  Company Number: None

PATIENT
  Age: 7 Year
  Sex: Female
  Weight: 35.1 kg

DRUGS (1)
  1. MONTELUKAST [Suspect]
     Active Substance: MONTELUKAST SODIUM
     Indication: Multiple allergies
     Dates: start: 20160331, end: 20211215

REACTIONS (15)
  - Obsessive-compulsive disorder [None]
  - Screaming [None]
  - Intentional self-injury [None]
  - Anxiety [None]
  - Depression [None]
  - Disturbance in attention [None]
  - Abdominal pain upper [None]
  - Nausea [None]
  - Phobia [None]
  - Sleep terror [None]
  - Vomiting [None]
  - Abnormal dreams [None]
  - Fear [None]
  - Suicidal ideation [None]
  - Dissociation [None]

NARRATIVE: CASE EVENT DATE: 20160601
